FAERS Safety Report 8796151 (Version 3)
Quarter: 2013Q1

REPORT INFORMATION
  Report Type: Spontaneous
  Country: US (occurrence: US)
  Receive Date: 20120920
  Receipt Date: 20130117
  Transmission Date: 20140127
  Serious: Yes (Hospitalization)
  Sender: FDA-Public Use
  Company Number: US-BAYER-2012-096955

PATIENT
  Age: 41 Year
  Sex: Female

DRUGS (2)
  1. OCELLA [Suspect]
     Dosage: UNK
  2. NAPROSYN [Concomitant]
     Dosage: PRN
     Dates: start: 20101029

REACTIONS (2)
  - Pulmonary embolism [None]
  - Off label use [None]
